FAERS Safety Report 25616372 (Version 1)
Quarter: 2025Q3

REPORT INFORMATION
  Report Type: Spontaneous
  Country: US (occurrence: US)
  Receive Date: 20250729
  Receipt Date: 20250729
  Transmission Date: 20251020
  Serious: No
  Sender: SANDOZ
  Company Number: US-SANDOZ-SDZ2025US053158

PATIENT
  Age: 64 Year
  Sex: Male

DRUGS (4)
  1. AZITHROMYCIN [Suspect]
     Active Substance: AZITHROMYCIN
     Indication: Product used for unknown indication
     Route: 065
  2. CEFTAROLINE [Concomitant]
     Active Substance: CEFTAROLINE
     Indication: Product used for unknown indication
     Route: 065
  3. MEROPENEM\VABORBACTAM [Concomitant]
     Active Substance: MEROPENEM\VABORBACTAM
     Indication: Product used for unknown indication
     Route: 065
  4. TIGECYCLINE [Concomitant]
     Active Substance: TIGECYCLINE
     Indication: Product used for unknown indication
     Route: 065

REACTIONS (1)
  - Drug ineffective [Unknown]
